FAERS Safety Report 5737122-9 (Version None)
Quarter: 2008Q2

REPORT INFORMATION
  Report Type: 
  Country: None (occurrence: None)
  Receive Date: 20080513
  Receipt Date: 20080513
  Transmission Date: 20081010
  Serious: Yes (Other)
  Sender: FDA-Public Use
  Company Number: None

PATIENT
  Age: 53 Year
  Sex: Male
  Weight: 78 kg

DRUGS (1)
  1. VASTIN 20MG NOVARTIS [Suspect]
     Dosage: 20MG DAILY PO
     Route: 048

REACTIONS (3)
  - ARTHRALGIA [None]
  - FALL [None]
  - MYALGIA [None]
